FAERS Safety Report 5371729-6 (Version None)
Quarter: 2007Q2

REPORT INFORMATION
  Report Type: 
  Country: None (occurrence: None)
  Receive Date: 20070625
  Receipt Date: 20070618
  Transmission Date: 20071010
  Serious: Yes (Hospitalization)
  Sender: FDA-Public Use
  Company Number: 2007AL002445

PATIENT
  Age: 20 Year
  Sex: Female
  Weight: 45 kg

DRUGS (1)
  1. PROPYLTHIOURACIL [Suspect]
     Indication: BASEDOW'S DISEASE
     Dosage: 300 MG;QD;PO
     Route: 048

REACTIONS (28)
  - ANTI-NEUTROPHIL CYTOPLASMIC ANTIBODY POSITIVE VASCULITIS [None]
  - ARTHRALGIA [None]
  - BLOOD ALBUMIN DECREASED [None]
  - BLOOD THYROID STIMULATING HORMONE DECREASED [None]
  - EXOPHTHALMOS [None]
  - GLOMERULONEPHRITIS [None]
  - GOITRE [None]
  - HAEMATURIA [None]
  - HAEMOGLOBIN DECREASED [None]
  - HAEMOPTYSIS [None]
  - HEARING IMPAIRED [None]
  - MALAISE [None]
  - MYALGIA [None]
  - OCULAR HYPERAEMIA [None]
  - PALLOR [None]
  - PALPITATIONS [None]
  - PLATELET COUNT INCREASED [None]
  - PO2 DECREASED [None]
  - PROTEIN URINE PRESENT [None]
  - PULMONARY HAEMORRHAGE [None]
  - RASH [None]
  - RED BLOOD CELL SEDIMENTATION RATE INCREASED [None]
  - RESPIRATORY RATE INCREASED [None]
  - TACHYCARDIA [None]
  - THYROXINE INCREASED [None]
  - TRI-IODOTHYRONINE INCREASED [None]
  - WEIGHT DECREASED [None]
  - WHEEZING [None]
